FAERS Safety Report 5134419-0 (Version None)
Quarter: 2006Q4

REPORT INFORMATION
  Report Type: 
  Country: None (occurrence: None)
  Receive Date: 20061023
  Receipt Date: 20061023
  Transmission Date: 20070319
  Serious: Yes (Death)
  Sender: FDA-Public Use
  Company Number: None

PATIENT
  Age: 71 Year
  Sex: Female
  Weight: 55.3388 kg

DRUGS (1)
  1. WARFARIN SODIUM [Suspect]

REACTIONS (10)
  - ABDOMINAL DISTENSION [None]
  - ABDOMINAL PAIN [None]
  - CARDIO-RESPIRATORY ARREST [None]
  - DECREASED APPETITE [None]
  - HAEMORRHAGE [None]
  - MOUTH HAEMORRHAGE [None]
  - POST PROCEDURAL HAEMORRHAGE [None]
  - REFUSAL OF TREATMENT BY PATIENT [None]
  - RESPIRATORY RATE INCREASED [None]
  - WEIGHT DECREASED [None]
